FAERS Safety Report 9409487 (Version 1)
Quarter: 2013Q3

REPORT INFORMATION
  Report Type: Spontaneous
  Country: US (occurrence: None)
  Receive Date: 20130716
  Receipt Date: 20130716
  Transmission Date: 20140515
  Serious: Yes (Other)
  Sender: FDA-Public Use
  Company Number: IMP_06737_2013

PATIENT
  Age: 51 Year
  Sex: Male

DRUGS (1)
  1. BUPROPION [Suspect]
     Indication: PRODUCT USED FOR UNKNOWN INDICATION
     Dosage: CRUSHED AND SNORTED SOME PILLS, NASAL
     Route: 045

REACTIONS (8)
  - Drug abuse [None]
  - Convulsion [None]
  - Serotonin syndrome [None]
  - Incorrect route of drug administration [None]
  - Euphoric mood [None]
  - Hallucination [None]
  - Tremor [None]
  - Muscle spasms [None]
